FAERS Safety Report 4922061-3 (Version None)
Quarter: 2006Q1

REPORT INFORMATION
  Report Type: 
  Country: None (occurrence: None)
  Receive Date: 20060222
  Receipt Date: 20060222
  Transmission Date: 20060701
  Serious: Yes (Hospitalization)
  Sender: FDA-Public Use
  Company Number: None

PATIENT
  Age: 52 Year
  Sex: Male
  Weight: 86 kg

DRUGS (9)
  1. DIGOXIN [Suspect]
     Indication: CARDIAC FAILURE CONGESTIVE
     Dosage: 0.25 PO DAILY  CHRONIC
     Route: 048
  2. DIOVAN [Concomitant]
  3. BUMEX [Concomitant]
  4. TOPROL-XL [Concomitant]
  5. SPIRONOLACTONE [Concomitant]
  6. DIGITEK [Concomitant]
  7. NIFEDIPINE [Concomitant]
  8. INDOMETHACIN [Concomitant]
  9. ASPIRIN [Concomitant]

REACTIONS (3)
  - ARRHYTHMIA [None]
  - RENAL FAILURE ACUTE [None]
  - THERAPEUTIC AGENT TOXICITY [None]
